FAERS Safety Report 12237070 (Version 3)
Quarter: 2016Q2

REPORT INFORMATION
  Report Type: Spontaneous
  Country: IT (occurrence: IT)
  Receive Date: 20160405
  Receipt Date: 20160420
  Transmission Date: 20160815
  Serious: Yes (Other)
  Sender: FDA-Public Use
  Company Number: IT-SUN PHARMACEUTICAL INDUSTRIES LTD-2016RR-114353

PATIENT
  Age: 48 Year
  Sex: Male

DRUGS (3)
  1. CLOPIXOL 20 MG/ML [Suspect]
     Active Substance: ZUCLOPENTHIXOL ACETATE
     Indication: PSYCHOMOTOR HYPERACTIVITY
     Dosage: 10 GTT, UNK
     Route: 048
  2. LORAZEPAM. [Suspect]
     Active Substance: LORAZEPAM
     Indication: PSYCHOMOTOR HYPERACTIVITY
     Dosage: 3 DF, UNK
     Route: 048
  3. FELISON 30 MG [Concomitant]
     Indication: INSOMNIA
     Dosage: 30 MG
     Route: 065

REACTIONS (4)
  - Akathisia [Recovering/Resolving]
  - Tremor [Recovering/Resolving]
  - Hyperpyrexia [Recovering/Resolving]
  - Feeling cold [Recovering/Resolving]

NARRATIVE: CASE EVENT DATE: 20160113
